FAERS Safety Report 13653409 (Version 1)
Quarter: 2017Q2

REPORT INFORMATION
  Report Type: Spontaneous
  Country: US (occurrence: US)
  Receive Date: 20170614
  Receipt Date: 20170614
  Transmission Date: 20170830
  Serious: No
  Sender: FDA-Public Use
  Company Number: US-ROCHE-1231301

PATIENT
  Sex: Male

DRUGS (1)
  1. XELODA [Suspect]
     Active Substance: CAPECITABINE
     Indication: THROAT CANCER
     Route: 065

REACTIONS (4)
  - Dyspnoea [Unknown]
  - Abdominal pain upper [Unknown]
  - Dizziness [Unknown]
  - Fatigue [Unknown]
